FAERS Safety Report 8255615-X (Version None)
Quarter: 2012Q2

REPORT INFORMATION
  Report Type: 
  Country: None (occurrence: None)
  Receive Date: 20120403
  Receipt Date: 20120327
  Transmission Date: 20120825
  Serious: Yes (Other)
  Sender: FDA-Public Use
  Company Number: PHHY2012NL026299

PATIENT
  Sex: Male

DRUGS (2)
  1. TOBI [Suspect]
     Indication: CHRONIC OBSTRUCTIVE PULMONARY DISEASE
  2. TOBI [Suspect]
     Indication: BRONCHIECTASIS

REACTIONS (1)
  - RENAL FAILURE [None]
